FAERS Safety Report 8455227-9 (Version None)
Quarter: 2012Q2

REPORT INFORMATION
  Report Type: 
  Country: None (occurrence: None)
  Receive Date: 20120621
  Receipt Date: 20120615
  Transmission Date: 20120825
  Serious: Yes (Death)
  Sender: FDA-Public Use
  Company Number: JP-ASTELLAS-2012JP005475

PATIENT
  Age: 45 Year
  Sex: Male

DRUGS (6)
  1. PREDNISOLONE [Concomitant]
     Indication: IMMUNOSUPPRESSION
  2. PROGRAF [Suspect]
     Indication: LIVER TRANSPLANT
     Route: 065
  3. METHYLPREDNISOLONE [Concomitant]
     Indication: IMMUNOSUPPRESSION
  4. PREDNISOLONE [Concomitant]
     Indication: LIVER TRANSPLANT
     Route: 065
  5. METHYLPREDNISOLONE [Concomitant]
     Indication: LIVER TRANSPLANT
     Route: 065
  6. PROGRAF [Suspect]
     Indication: IMMUNOSUPPRESSION

REACTIONS (2)
  - LIVER TRANSPLANT REJECTION [None]
  - DRUG INEFFECTIVE [None]
